FAERS Safety Report 5982339-1 (Version None)
Quarter: 2008Q4

REPORT INFORMATION
  Report Type: 
  Country: None (occurrence: None)
  Receive Date: 20081208
  Receipt Date: 20080228
  Transmission Date: 20090506
  Serious: No
  Sender: FDA-Public Use
  Company Number: US-AMGEN-KDL266026

PATIENT
  Sex: Female

DRUGS (3)
  1. ENBREL [Suspect]
     Indication: RHEUMATOID ARTHRITIS
     Route: 058
     Dates: start: 20070701
  2. ENBREL [Suspect]
     Indication: PSORIATIC ARTHROPATHY
  3. PLAQUENIL [Concomitant]
     Dates: start: 20070101

REACTIONS (3)
  - GENITAL PAIN [None]
  - OEDEMA GENITAL [None]
  - VIRAL INFECTION [None]
